FAERS Safety Report 24732071 (Version 1)
Quarter: 2024Q4

REPORT INFORMATION
  Report Type: Other
  Country: FR (occurrence: FR)
  Receive Date: 20241213
  Receipt Date: 20241213
  Transmission Date: 20250114
  Serious: Yes (Hospitalization)
  Sender: Atnahs Healthcare
  Company Number: None

PATIENT
  Age: 33 Year
  Sex: Male

DRUGS (2)
  1. VALIUM [Suspect]
     Active Substance: DIAZEPAM
     Indication: Schizophrenia
     Dosage: 70 MG/TOTAL
     Route: 048
     Dates: start: 20241018, end: 20241020
  2. LOXAPINE [Suspect]
     Active Substance: LOXAPINE
     Indication: Schizophrenia
     Dosage: 500 MG/ IN TOTAL
     Route: 048
     Dates: start: 20241018, end: 20241020

REACTIONS (1)
  - Pneumonia aspiration [Recovered/Resolved]

NARRATIVE: CASE EVENT DATE: 20241019
